FAERS Safety Report 8158605-0 (Version None)
Quarter: 2012Q1

REPORT INFORMATION
  Report Type: 
  Country: None (occurrence: None)
  Receive Date: 20120223
  Receipt Date: 20120215
  Transmission Date: 20120608
  Serious: Yes (Hospitalization, Other)
  Sender: FDA-Public Use
  Company Number: US-BAYER-2011-054904

PATIENT
  Age: 37 Year
  Sex: Female
  Weight: 136 kg

DRUGS (13)
  1. FLONASE [Concomitant]
     Indication: MULTIPLE ALLERGIES
     Dosage: UNK
     Dates: start: 19950101
  2. SYNTHROID [Concomitant]
  3. ALBUTEROL [Concomitant]
     Indication: ASTHMA
     Dosage: UNK
     Dates: start: 19930101
  4. LEXAPRO [Concomitant]
     Dosage: 20 MG, UNK
     Route: 048
  5. ADVAIR DISKUS 100/50 [Concomitant]
     Indication: ASTHMA
     Dosage: 250/50
     Dates: start: 20030101
  6. LEVOTHYROXINE SODIUM [Concomitant]
     Indication: HYPOTHYROIDISM
     Dosage: 125 ?G, UNK
     Route: 048
     Dates: start: 20010101
  7. MULTI-VITAMIN [Concomitant]
     Dosage: UNK
     Route: 048
     Dates: start: 19950101
  8. YASMIN [Suspect]
     Indication: PREMENSTRUAL SYNDROME
  9. HYOSCYAMINE [Concomitant]
     Dosage: UNK
     Dates: start: 20070701
  10. SINGULAIR [Concomitant]
     Indication: MULTIPLE ALLERGIES
     Dosage: UNK
     Route: 048
     Dates: start: 20040101
  11. SINGULAIR [Concomitant]
     Indication: ASTHMA
  12. DROSPIRENONE AND ETHINYL ESTRADIOL [Suspect]
     Indication: PREMENSTRUAL SYNDROME
  13. MULTI-VITAMIN [Concomitant]
     Dosage: UNK
     Route: 048
     Dates: start: 19950101

REACTIONS (16)
  - GALLBLADDER CHOLESTEROLOSIS [None]
  - CEREBROVASCULAR ACCIDENT [None]
  - ANXIETY [None]
  - CHOLECYSTITIS CHRONIC [None]
  - DEEP VEIN THROMBOSIS [None]
  - ANHEDONIA [None]
  - SOMATOFORM DISORDER [None]
  - BILE DUCT STONE [None]
  - AFFECTIVE DISORDER [None]
  - DEPRESSION [None]
  - CHOLECYSTECTOMY [None]
  - PULMONARY EMBOLISM [None]
  - INJURY [None]
  - CHOLELITHIASIS [None]
  - MYOCARDIAL INFARCTION [None]
  - PAIN [None]
